FAERS Safety Report 23870225 (Version 1)
Quarter: 2024Q2

REPORT INFORMATION
  Report Type: Other
  Country: JP (occurrence: JP)
  Receive Date: 20240517
  Receipt Date: 20240517
  Transmission Date: 20240716
  Serious: Yes (Death)
  Sender: FDA-Public Use
  Company Number: JP-B.Braun Medical Inc.-2157138

PATIENT
  Age: 18 Year
  Sex: Female
  Weight: 1.904 kg

DRUGS (6)
  1. ACETAMINOPHEN [Suspect]
     Active Substance: ACETAMINOPHEN
     Indication: Pain
  2. PAMIDRONATE DISODIUM [Suspect]
     Active Substance: PAMIDRONATE DISODIUM
  3. CALCIUM GLUCONATE [Concomitant]
     Active Substance: CALCIUM GLUCONATE
  4. ALFACALCIDOL [Concomitant]
     Active Substance: ALFACALCIDOL
  5. MORPHINE HYDROCHLORIDE [Concomitant]
     Active Substance: MORPHINE HYDROCHLORIDE
  6. FENTANYL [Concomitant]
     Active Substance: FENTANYL\FENTANYL CITRATE

REACTIONS (4)
  - Pulmonary haemorrhage [Fatal]
  - Product administered to patient of inappropriate age [Fatal]
  - Off label use [Fatal]
  - Respiratory failure [Fatal]
